FAERS Safety Report 5218368-5 (Version None)
Quarter: 2007Q1

REPORT INFORMATION
  Report Type: 
  Country: None (occurrence: None)
  Receive Date: 20070119
  Receipt Date: 20070110
  Transmission Date: 20070707
  Serious: Yes (Hospitalization, Other)
  Sender: FDA-Public Use
  Company Number: 2006-03256

PATIENT
  Age: 75 Year
  Sex: Male

DRUGS (2)
  1. VELCADE [Suspect]
     Indication: MULTIPLE MYELOMA
     Dosage: INTRAVENOUS
     Route: 042
     Dates: start: 20061006, end: 20061204
  2. DEXAMETHASONE [Suspect]
     Indication: MULTIPLE MYELOMA
     Dosage: INTRAVENOUS
     Route: 042
     Dates: start: 20061006, end: 20061204

REACTIONS (11)
  - ASPARTATE AMINOTRANSFERASE INCREASED [None]
  - BONE MARROW FAILURE [None]
  - CARDIAC FAILURE [None]
  - DRUG TOLERANCE DECREASED [None]
  - ENCEPHALOPATHY [None]
  - HEPATOTOXICITY [None]
  - KLEBSIELLA BACTERAEMIA [None]
  - NERVE ROOT COMPRESSION [None]
  - NEUROPATHY PERIPHERAL [None]
  - PLASMACYTOMA [None]
  - TRANSAMINASES INCREASED [None]
